FAERS Safety Report 24905824 (Version 1)
Quarter: 2025Q1

REPORT INFORMATION
  Report Type: Spontaneous
  Country: US (occurrence: None)
  Receive Date: 20250130
  Receipt Date: 20250130
  Transmission Date: 20250409
  Serious: No
  Sender: FDA-CTU
  Company Number: None

PATIENT
  Age: 50 Year
  Sex: Male
  Weight: 78.8 kg

DRUGS (3)
  1. CABOTEGRAVIR\RILPIVIRINE [Suspect]
     Active Substance: CABOTEGRAVIR\RILPIVIRINE
     Indication: HIV infection
     Dosage: OTHER FREQUENCY : EVERY 8 WEEKS;?
     Route: 030
     Dates: start: 20221102
  2. ACYCLOVIR [Concomitant]
     Active Substance: ACYCLOVIR
     Dates: start: 20180116
  3. FENOFIBRATE [Concomitant]
     Active Substance: FENOFIBRATE
     Dates: start: 20210622

REACTIONS (2)
  - Tremor [None]
  - Pallor [None]

NARRATIVE: CASE EVENT DATE: 20250121
